FAERS Safety Report 11824369 (Version 2)
Quarter: 2016Q1

REPORT INFORMATION
  Report Type: Spontaneous
  Country: CH (occurrence: CH)
  Receive Date: 20151210
  Receipt Date: 20160113
  Transmission Date: 20160525
  Serious: Yes (Other)
  Sender: FDA-Public Use
  Company Number: CH-PFIZER INC-2015435059

PATIENT
  Age: 52 Year
  Sex: Male
  Weight: 109 kg

DRUGS (4)
  1. TORASEMID [Suspect]
     Active Substance: TORSEMIDE
     Indication: HYPERTONIA
     Dosage: 5 MG, UNK
     Route: 048
     Dates: start: 201312
  2. PHYSIOTENS [Suspect]
     Active Substance: MOXONIDINE
     Indication: HYPERTONIA
     Dosage: 0.4 MG, UNK
     Route: 048
     Dates: start: 201312
  3. DILZEM [Suspect]
     Active Substance: DILTIAZEM
     Indication: HYPERTONIA
     Dosage: 240 MG, UNK
     Route: 048
     Dates: start: 201312
  4. INSPRA [Suspect]
     Active Substance: EPLERENONE
     Indication: HYPERTONIA
     Dosage: 25 MG, UNK
     Route: 048
     Dates: start: 201312

REACTIONS (2)
  - Proctitis [Unknown]
  - Colitis ulcerative [Unknown]

NARRATIVE: CASE EVENT DATE: 20140110
